FAERS Safety Report 13833650 (Version 1)
Quarter: 2017Q3

REPORT INFORMATION
  Report Type: Spontaneous
  Country: US (occurrence: US)
  Receive Date: 20170803
  Receipt Date: 20170803
  Transmission Date: 20171127
  Serious: Yes (Hospitalization)
  Sender: FDA-Public Use
  Company Number: None

PATIENT
  Sex: Female
  Weight: 81.19 kg

DRUGS (1)
  1. PROLIA [Suspect]
     Active Substance: DENOSUMAB
     Indication: SENILE OSTEOPOROSIS
     Dosage: 30MG Q6MO SUBQ
     Route: 058

REACTIONS (5)
  - Nasal operation [None]
  - Nephrolithiasis [None]
  - Post procedural complication [None]
  - Road traffic accident [None]
  - Spinal operation [None]
